FAERS Safety Report 8178695-9 (Version None)
Quarter: 2012Q1

REPORT INFORMATION
  Report Type: 
  Country: None (occurrence: None)
  Receive Date: 20120301
  Receipt Date: 20120220
  Transmission Date: 20120608
  Serious: Yes (Death, Hospitalization)
  Sender: FDA-Public Use
  Company Number: TH-BAXTER-2012BH005017

PATIENT
  Age: 78 Year
  Sex: Female

DRUGS (1)
  1. DIANEAL [Suspect]
     Indication: PERITONEAL DIALYSIS
     Route: 033
     Dates: start: 20120120

REACTIONS (2)
  - CARDIAC FAILURE CONGESTIVE [None]
  - FLUID OVERLOAD [None]
